FAERS Safety Report 6636861-5 (Version None)
Quarter: 2010Q1

REPORT INFORMATION
  Report Type: 
  Country: None (occurrence: None)
  Receive Date: 20100316
  Receipt Date: 20100310
  Transmission Date: 20100710
  Serious: Yes (Death)
  Sender: FDA-Public Use
  Company Number: DE-WYE-G05738010

PATIENT
  Sex: Male

DRUGS (36)
  1. TAZOBAC [Suspect]
     Indication: ARTHRITIS
     Dosage: 4.5 G 2-3 TIMES PER DAY
     Route: 042
     Dates: start: 20071228, end: 20080131
  2. SODIUM CHLORIDE [Concomitant]
     Dosage: UNKNOWN
     Route: 042
     Dates: start: 20080109
  3. FLUCONAZOLE [Suspect]
     Indication: ARTHRITIS
     Route: 042
     Dates: start: 20080114, end: 20080128
  4. CIPROFLOXACIN [Suspect]
     Indication: ARTHRITIS
     Dosage: 200 MG 1-2 TIMES PER DAY
     Route: 042
     Dates: start: 20080114
  5. FURORESE [Suspect]
     Indication: POLYURIA
     Route: 042
     Dates: start: 20080117, end: 20080131
  6. HEPARIN SODIUM [Suspect]
     Indication: THROMBOSIS PROPHYLAXIS
     Dosage: UNKNOWN
     Route: 042
     Dates: start: 20080117
  7. CALCIUM CHLORIDE DIHYDRATE [Concomitant]
     Route: 042
     Dates: start: 20080127, end: 20080127
  8. NEXIUM [Suspect]
     Indication: PROPHYLAXIS AGAINST GASTROINTESTINAL ULCER
     Route: 048
     Dates: start: 20080120
  9. LORAZEPAM [Concomitant]
     Indication: RESTLESSNESS
     Dosage: 1-1.25 MG PER DAY
     Route: 048
     Dates: start: 20080123, end: 20080124
  10. AKRINOR [Concomitant]
     Indication: HYPOTENSION
     Dosage: 2-3 ML PER DAY
     Route: 042
     Dates: start: 20080123, end: 20080124
  11. PROPOFOL [Suspect]
     Indication: STUPOR
     Dosage: UNKNOWN
     Route: 042
     Dates: start: 20080123, end: 20080127
  12. ULTIVA [Suspect]
     Indication: STUPOR
     Route: 042
     Dates: start: 20080123, end: 20080127
  13. GELAFUNDIN [Concomitant]
     Dosage: UNKNOWN
     Route: 042
     Dates: start: 20080204, end: 20080204
  14. POTASSIUM CHLORIDE [Concomitant]
     Dosage: UNKNOWN
     Route: 042
     Dates: start: 20080127, end: 20080128
  15. POTASSIUM CHLORIDE [Concomitant]
     Dosage: UNKNOWN
     Route: 042
     Dates: start: 20080130, end: 20080130
  16. JONOSTERIL [Concomitant]
     Dosage: UNKNOWN
     Route: 042
     Dates: start: 20080124, end: 20080131
  17. KETAMINE HCL [Suspect]
     Indication: STUPOR
     Route: 042
     Dates: start: 20080124, end: 20080124
  18. KETAMINE HCL [Suspect]
     Route: 042
     Dates: start: 20080128, end: 20080128
  19. KETAMINE HCL [Suspect]
     Route: 042
     Dates: start: 20080130, end: 20080130
  20. KETAMINE HCL [Suspect]
     Route: 042
     Dates: start: 20080201, end: 20080201
  21. GLUCOSE INJECTION [Concomitant]
     Dosage: UNKNOWN
     Route: 042
     Dates: start: 20080124, end: 20080129
  22. GLUCOSE INJECTION [Concomitant]
     Dosage: UNKNOWN
     Route: 042
     Dates: start: 20080204, end: 20080204
  23. BELOC ZOK [Suspect]
     Indication: HYPERTENSION
     Route: 048
     Dates: start: 20080127
  24. JONOSTERIL PAED I/II/III [Concomitant]
     Dosage: UNKNOWN
     Route: 042
     Dates: start: 20080126, end: 20080126
  25. BELOC [Suspect]
     Indication: HYPERTENSION
     Route: 042
     Dates: start: 20080126, end: 20080127
  26. DULCOLAX [Suspect]
     Indication: CONSTIPATION
     Route: 054
     Dates: start: 20080127, end: 20080127
  27. LYRICA [Suspect]
     Indication: DEPRESSION
     Route: 048
     Dates: start: 20080128, end: 20080201
  28. DORMICUM [Suspect]
     Indication: RESTLESSNESS
     Dosage: 2-6 MG PER DAY
     Route: 042
     Dates: start: 20080130, end: 20080130
  29. DORMICUM [Suspect]
     Dosage: 2-6 MG PER DAY
     Route: 042
     Dates: start: 20080201, end: 20080201
  30. INSULIN HUMAN [Suspect]
     Indication: HYPERGLYCAEMIA
     Dosage: UNKNOWN
     Route: 042
     Dates: start: 20080128, end: 20080203
  31. HYDROCORTISONE [Suspect]
     Indication: SEPSIS
     Route: 042
     Dates: start: 20080129, end: 20080129
  32. LEVOTHYROXINE SODIUM [Suspect]
     Indication: HYPOTHYROIDISM
     Dosage: 125-150 ?G PER DAY
     Route: 048
     Dates: start: 20080129
  33. KABIVEN [Concomitant]
     Dosage: UNKNOWN
     Route: 042
     Dates: start: 20080131, end: 20080203
  34. DIPIDOLOR [Concomitant]
     Indication: PAIN
     Dosage: 3.75-7.5 MG PER DAY
     Route: 042
     Dates: start: 20080202, end: 20080202
  35. TPN ELECTROLYTES IN PLASTIC CONTAINER [Concomitant]
     Dosage: UNKNOWN
     Route: 042
     Dates: start: 20080202
  36. DURAGESIC-100 [Concomitant]
     Indication: PAIN
     Dosage: 25-50 ?G/H, FREQUENCY UNKNOWN
     Route: 062
     Dates: start: 20071202

REACTIONS (2)
  - STEVENS-JOHNSON SYNDROME [None]
  - TOXIC EPIDERMAL NECROLYSIS [None]
